FAERS Safety Report 9063004 (Version 1)
Quarter: 2013Q1

REPORT INFORMATION
  Report Type: Report from Study
  Country: US (occurrence: US)
  Receive Date: 20130131
  Receipt Date: 20130131
  Transmission Date: 20140127
  Serious: No
  Sender: FDA-Public Use
  Company Number: US-ABBOTT-12P-163-1013544-00

PATIENT
  Age: 45 Year
  Sex: Female

DRUGS (7)
  1. HUMIRA [Suspect]
     Indication: COLITIS ULCERATIVE
     Dosage: LOADING DOSE
     Dates: start: 20121112
  2. LIALDA [Concomitant]
     Indication: COLITIS
     Dosage: 4 TABLETS DAILY
  3. ZYRTEC [Concomitant]
     Indication: HYPERSENSITIVITY
  4. FLUTICASONE [Concomitant]
     Indication: HYPERSENSITIVITY
     Dosage: SPRAY, 2 SPRAYS EACH NOSTRIL DAILY AT BEDTIME
     Route: 045
  5. GUAIFENESIN [Concomitant]
     Indication: PRODUCT USED FOR UNKNOWN INDICATION
  6. MUCINEX [Concomitant]
     Indication: PRODUCT USED FOR UNKNOWN INDICATION
  7. TYLENOL [Concomitant]
     Indication: HEADACHE

REACTIONS (9)
  - Increased upper airway secretion [Not Recovered/Not Resolved]
  - Nasopharyngitis [Not Recovered/Not Resolved]
  - Poor quality sleep [Not Recovered/Not Resolved]
  - Neck pain [Not Recovered/Not Resolved]
  - Fatigue [Unknown]
  - Headache [Unknown]
  - Abdominal pain upper [Unknown]
  - Sinusitis [Not Recovered/Not Resolved]
  - Bronchitis [Recovered/Resolved]
